FAERS Safety Report 22390752 (Version 6)
Quarter: 2023Q4

REPORT INFORMATION
  Report Type: Spontaneous
  Country: US (occurrence: US)
  Receive Date: 20230531
  Receipt Date: 20231221
  Transmission Date: 20240109
  Serious: Yes (Hospitalization)
  Sender: FDA-Public Use
  Company Number: US-KARYOPHARM-2023KPT001264

PATIENT

DRUGS (30)
  1. XPOVIO [Suspect]
     Active Substance: SELINEXOR
     Indication: Plasma cell myeloma
     Dosage: 80 MG, 2X/WEEK
     Route: 048
     Dates: start: 202305, end: 202306
  2. XPOVIO [Suspect]
     Active Substance: SELINEXOR
     Dosage: 100 MG, WEEKLY
     Dates: start: 202306, end: 2023
  3. XPOVIO [Suspect]
     Active Substance: SELINEXOR
     Dosage: 80 MG, WEEKLY
     Route: 048
     Dates: start: 2023, end: 202311
  4. ALBUTEROL [Concomitant]
     Active Substance: ALBUTEROL
  5. CARVEDILOL [Concomitant]
     Active Substance: CARVEDILOL
  6. CETIRIZINE [Concomitant]
     Active Substance: CETIRIZINE HYDROCHLORIDE
  7. CHERATUSSIN AC [Concomitant]
     Active Substance: CODEINE PHOSPHATE\GUAIFENESIN
  8. COLACE [Concomitant]
     Active Substance: DOCUSATE SODIUM
  9. ENTRESTO [Concomitant]
     Active Substance: SACUBITRIL\VALSARTAN
  10. GABAPENTIN [Concomitant]
     Active Substance: GABAPENTIN
  11. ALBUTEROL SULFATE\IPRATROPIUM BROMIDE [Concomitant]
     Active Substance: ALBUTEROL SULFATE\IPRATROPIUM BROMIDE
  12. JARDIANCE [Concomitant]
     Active Substance: EMPAGLIFLOZIN
  13. LASIX [Concomitant]
     Active Substance: FUROSEMIDE
  14. MODAFINIL [Concomitant]
     Active Substance: MODAFINIL
  15. MS CONTIN [Concomitant]
     Active Substance: MORPHINE SULFATE
  16. OXYCODONE [Concomitant]
     Active Substance: OXYCODONE
  17. PANTOPRAZOLE [Concomitant]
     Active Substance: PANTOPRAZOLE
  18. PENTOXIFYLLINE [Concomitant]
     Active Substance: PENTOXIFYLLINE
  19. SERTRALINE [Concomitant]
     Active Substance: SERTRALINE HYDROCHLORIDE
  20. STIOLTO RESPIMAT [Concomitant]
     Active Substance: OLODATEROL HYDROCHLORIDE\TIOTROPIUM BROMIDE MONOHYDRATE
  21. TESSALON [Concomitant]
     Active Substance: BENZONATATE
  22. ZOFRAN [Concomitant]
     Active Substance: ONDANSETRON HYDROCHLORIDE
  23. METFORMIN [Concomitant]
     Active Substance: METFORMIN HYDROCHLORIDE
  24. MYSOLINE [Concomitant]
     Active Substance: PRIMIDONE
  25. NARCAN [Concomitant]
     Active Substance: NALOXONE HYDROCHLORIDE
  26. BUDESONIDE;FORMOTEROL;GLYCOPYRRONIUM [Concomitant]
  27. CLOPIDOGREL [Concomitant]
     Active Substance: CLOPIDOGREL BISULFATE
  28. DEXAMETHASONE [Concomitant]
     Active Substance: DEXAMETHASONE
  29. GUAIFENESIN [Concomitant]
     Active Substance: GUAIFENESIN
  30. METOPROLOL [Concomitant]
     Active Substance: METOPROLOL

REACTIONS (8)
  - Dyspnoea [Unknown]
  - Somnolence [Unknown]
  - Impaired quality of life [Unknown]
  - Pain [Unknown]
  - Cough [Unknown]
  - Skin fissures [Not Recovered/Not Resolved]
  - Hyperhidrosis [Unknown]
  - Fatigue [Not Recovered/Not Resolved]

NARRATIVE: CASE EVENT DATE: 20230101
